FAERS Safety Report 20585861 (Version 1)
Quarter: 2022Q1

REPORT INFORMATION
  Report Type: Other
  Country: JP (occurrence: JP)
  Receive Date: 20220312
  Receipt Date: 20220312
  Transmission Date: 20220423
  Serious: Yes (Other)
  Sender: FDA-Public Use
  Company Number: JP-CHUGAI-2021026015

PATIENT
  Age: 75 Year
  Sex: Male

DRUGS (13)
  1. CELLCEPT [Suspect]
     Active Substance: MYCOPHENOLATE MOFETIL
     Indication: Myocarditis
     Route: 048
  2. CELLCEPT [Suspect]
     Active Substance: MYCOPHENOLATE MOFETIL
     Indication: Immune-mediated myocarditis
  3. METHYLPREDNISOLONE [Suspect]
     Active Substance: METHYLPREDNISOLONE
     Indication: Immune-mediated myocarditis
     Route: 065
  4. PREDNISOLONE [Suspect]
     Active Substance: PREDNISOLONE
     Indication: Immune-mediated myocarditis
     Route: 065
  5. CISPLATIN [Suspect]
     Active Substance: CISPLATIN
     Indication: Squamous cell carcinoma of the hypopharynx
     Route: 065
     Dates: start: 202005
  6. CISPLATIN [Suspect]
     Active Substance: CISPLATIN
     Indication: Hypopharyngeal cancer
  7. NIVOLUMAB [Suspect]
     Active Substance: NIVOLUMAB
     Indication: Squamous cell carcinoma of the hypopharynx
     Route: 065
     Dates: start: 20200803
  8. NIVOLUMAB [Suspect]
     Active Substance: NIVOLUMAB
     Indication: Hypopharyngeal cancer
  9. DOCETAXEL [Suspect]
     Active Substance: DOCETAXEL
     Indication: Squamous cell carcinoma of the hypopharynx
     Route: 065
  10. DOCETAXEL [Suspect]
     Active Substance: DOCETAXEL
     Indication: Hypopharyngeal cancer
  11. FLUOROURACIL [Suspect]
     Active Substance: FLUOROURACIL
     Indication: Squamous cell carcinoma of the hypopharynx
     Route: 065
  12. FLUOROURACIL [Suspect]
     Active Substance: FLUOROURACIL
     Indication: Hypopharyngeal cancer
  13. DOBUTAMINE HYDROCHLORIDE [Concomitant]
     Active Substance: DOBUTAMINE HYDROCHLORIDE
     Indication: Myocarditis
     Route: 065

REACTIONS (2)
  - Systemic viral infection [Unknown]
  - Off label use [Unknown]
